FAERS Safety Report 8960477 (Version 1)
Quarter: 2012Q4

REPORT INFORMATION
  Report Type: Spontaneous
  Country: AU (occurrence: None)
  Receive Date: 20121203
  Receipt Date: 20121203
  Transmission Date: 20130627
  Serious: Yes (Hospitalization)
  Sender: FDA-Public Use
  Company Number: DSA_61062_2012

PATIENT

DRUGS (2)
  1. FLUOROURACIL (FLUOROURACIL) [Suspect]
     Indication: COLORECTAL CANCER
     Dosage: (DF)
  2. LEUCOVORIN [Suspect]
     Indication: COLORECTAL CANCER
     Dosage: (DF)
     Route: 040

REACTIONS (2)
  - Diarrhoea [None]
  - Mucosal inflammation [None]
